FAERS Safety Report 13146557 (Version 1)
Quarter: 2017Q1

REPORT INFORMATION
  Report Type: Report from Study
  Country: CA (occurrence: CA)
  Receive Date: 20170125
  Receipt Date: 20170125
  Transmission Date: 20170428
  Serious: Yes (Other)
  Sender: FDA-Public Use
  Company Number: CA-AMGEN-CANSL2017010114

PATIENT
  Age: 79 Year
  Sex: Female

DRUGS (7)
  1. IRON [Concomitant]
     Active Substance: IRON
     Indication: HAEMOGLOBIN ABNORMAL
  2. MULTIVITAMIN [Concomitant]
     Active Substance: VITAMINS
  3. SYNTHROID [Concomitant]
     Active Substance: LEVOTHYROXINE SODIUM
  4. VITAMIN D [Concomitant]
     Active Substance: CHOLECALCIFEROL
  5. PROLIA [Suspect]
     Active Substance: DENOSUMAB
     Indication: OSTEOPOROSIS
     Dosage: UNK
     Route: 065
     Dates: start: 20151207
  6. LIPITOR [Concomitant]
     Active Substance: ATORVASTATIN CALCIUM
  7. EZETROL [Concomitant]
     Active Substance: EZETIMIBE

REACTIONS (3)
  - Haematochezia [Unknown]
  - Gastric disorder [Unknown]
  - Dysphagia [Unknown]
